FAERS Safety Report 9507744 (Version 1)
Quarter: 2013Q3

REPORT INFORMATION
  Report Type: Report from Study
  Country: JP (occurrence: JP)
  Receive Date: 20130909
  Receipt Date: 20130909
  Transmission Date: 20140515
  Serious: Yes (Hospitalization)
  Sender: FDA-Public Use
  Company Number: JP-GENZYME-THYM-1004083

PATIENT
  Age: 76 Year
  Sex: Male
  Weight: 65 kg

DRUGS (22)
  1. THYMOGLOBULIN [Suspect]
     Indication: APLASTIC ANAEMIA
     Dosage: UNK, QD
     Route: 065
     Dates: start: 20120528, end: 20120601
  2. NEORAL [Suspect]
     Indication: APLASTIC ANAEMIA
     Dosage: UNK
     Route: 065
     Dates: start: 20120525, end: 20130410
  3. PREDNISOLONE [Suspect]
     Indication: APLASTIC ANAEMIA
     Dosage: 40 MG, QD
     Route: 065
     Dates: start: 20120602, end: 20120608
  4. PREDNISOLONE [Suspect]
     Indication: PROPHYLAXIS
     Dosage: 20 MG, QD
     Route: 065
     Dates: start: 20120609, end: 20120613
  5. PREDNISOLONE [Suspect]
     Dosage: 15 MG, QD
     Route: 065
     Dates: start: 20120614, end: 20120618
  6. PREDNISOLONE [Suspect]
     Dosage: 10 MG, QD
     Route: 065
     Dates: start: 20120619, end: 20120623
  7. PREDNISOLONE [Suspect]
     Dosage: 5 MG, QD
     Route: 065
     Dates: start: 20120624, end: 20120628
  8. METHYLCOBALAMINE W [Concomitant]
     Indication: VITAMIN B12 DEFICIENCY
     Dosage: 1500 MCG, QD
     Route: 065
     Dates: start: 20120522, end: 20120611
  9. LENDORMIN D [Concomitant]
     Indication: INSOMNIA
     Dosage: 0.25 MG, QD
     Route: 065
     Dates: start: 20120524
  10. OMEPRAL [Concomitant]
     Indication: PROPHYLAXIS AGAINST GASTROINTESTINAL ULCER
     Dosage: 10 MG, QD
     Route: 065
     Dates: start: 20120525, end: 20121118
  11. ITRIZOLE [Concomitant]
     Indication: ANTIFUNGAL PROPHYLAXIS
     Dosage: 100 MG, QD
     Route: 065
     Dates: start: 20120525, end: 20120923
  12. GASLON [Concomitant]
     Indication: PROPHYLAXIS AGAINST GASTROINTESTINAL ULCER
     Dosage: 4 MG, QD
     Route: 065
     Dates: start: 20120525, end: 20120719
  13. BAKTAR [Concomitant]
     Indication: ANTIFUNGAL PROPHYLAXIS
     Dosage: 2 DF, 2X/W
     Route: 065
     Dates: start: 20120525, end: 20121102
  14. LOXONIN [Concomitant]
     Indication: PROPHYLAXIS
     Dosage: 60 MG, QD
     Route: 065
     Dates: start: 20120528, end: 20120601
  15. ALLELOCK [Concomitant]
     Indication: PROPHYLAXIS
     Dosage: 5 MG, QD
     Route: 065
     Dates: start: 20120528, end: 20120601
  16. CRAVIT [Concomitant]
     Indication: INFECTION PROPHYLAXIS
     Dosage: 500 MG, QD
     Route: 065
     Dates: start: 20120528, end: 20120704
  17. SOLU-MEDROL [Concomitant]
     Indication: APLASTIC ANAEMIA
     Dosage: 80 MG, UNK
     Route: 065
     Dates: start: 20120528, end: 20120601
  18. SOLU-MEDROL [Concomitant]
     Indication: PROPHYLAXIS
  19. PREDOHAN [Concomitant]
     Indication: APLASTIC ANAEMIA
     Dosage: 2.5 MG, QD
     Route: 065
     Dates: start: 20120629, end: 20120703
  20. PREDOHAN [Concomitant]
     Indication: PROPHYLAXIS
  21. NEUTROGIN [Concomitant]
     Indication: APLASTIC ANAEMIA
     Dosage: 250 MCG, UNK
     Route: 065
     Dates: start: 20120528, end: 20120605
  22. NEUTROGIN [Concomitant]
     Dosage: 100 MCG, UNK
     Route: 065
     Dates: start: 20120606, end: 20130328

REACTIONS (2)
  - Febrile neutropenia [Recovered/Resolved]
  - Febrile neutropenia [Recovered/Resolved]
